FAERS Safety Report 24628253 (Version 1)
Quarter: 2024Q4

REPORT INFORMATION
  Report Type: Spontaneous
  Country: US (occurrence: US)
  Receive Date: 20241117
  Receipt Date: 20241117
  Transmission Date: 20250115
  Serious: Yes (Life-Threatening, Hospitalization, Other)
  Sender: AUROBINDO
  Company Number: US-MLMSERVICE-20241031-PI244055-00329-2

PATIENT
  Age: 70 Year
  Sex: Male

DRUGS (1)
  1. VANCOMYCIN [Suspect]
     Active Substance: VANCOMYCIN
     Indication: Evidence based treatment
     Dosage: UNK
     Route: 065

REACTIONS (7)
  - Anaphylactic shock [Unknown]
  - Hypoxia [Unknown]
  - Swollen tongue [Unknown]
  - Dyspnoea [Unknown]
  - Swelling face [Unknown]
  - Mental status changes [Unknown]
  - Bradycardia [Unknown]
